FAERS Safety Report 9495463 (Version 3)
Quarter: 2013Q4

REPORT INFORMATION
  Report Type: Spontaneous
  Country: US (occurrence: US)
  Receive Date: 20130903
  Receipt Date: 20131011
  Transmission Date: 20140711
  Serious: Yes (Hospitalization, Disabling, Other)
  Sender: FDA-Public Use
  Company Number: US-009507513-1103USA02535

PATIENT
  Sex: Female
  Weight: 65.76 kg

DRUGS (6)
  1. FOSAMAX [Suspect]
     Indication: OSTEOPENIA
     Dosage: 70 MG, UNK
     Route: 048
     Dates: start: 20041116, end: 20051120
  2. BONIVA [Suspect]
     Indication: OSTEOPENIA
     Dosage: 150 MG, UNK
     Dates: start: 200604, end: 200910
  3. ACTONEL [Suspect]
     Indication: OSTEOPENIA
     Dosage: 5 MG, UNK
     Dates: start: 20020224, end: 20031120
  4. ACTONEL [Suspect]
     Dosage: 35 MG, UNK
     Dates: start: 20031222, end: 200411
  5. SYNTHROID [Concomitant]
     Dosage: UNK
     Dates: start: 2000
  6. EFFEXOR [Concomitant]
     Indication: DEPRESSION
     Dosage: UNK
     Dates: start: 200006

REACTIONS (22)
  - Intramedullary rod insertion [Unknown]
  - Intramedullary rod insertion [Unknown]
  - Femur fracture [Recovered/Resolved with Sequelae]
  - Fall [Unknown]
  - Femur fracture [Unknown]
  - Femur fracture [Recovered/Resolved with Sequelae]
  - Low turnover osteopathy [Unknown]
  - Depression [Unknown]
  - Anxiety [Unknown]
  - Oral surgery [Unknown]
  - Dental implantation [Unknown]
  - Hypothyroidism [Unknown]
  - Large intestine polyp [Unknown]
  - Osteoporosis [Unknown]
  - Polypectomy [Unknown]
  - Cough [Unknown]
  - Bursitis [Unknown]
  - Erythema [Unknown]
  - Musculoskeletal chest pain [Unknown]
  - Myalgia [Unknown]
  - Pain in extremity [Unknown]
  - Back pain [Unknown]
